FAERS Safety Report 7533983 (Version 4)
Quarter: 2012Q4

REPORT INFORMATION
  Report Type: Report from Study
  Country: JP (occurrence: JP)
  Receive Date: 20100809
  Receipt Date: 20121126
  Transmission Date: 20130627
  Serious: Yes (Hospitalization, Other)
  Sender: FDA-Public Use
  Company Number: JP-ROCHE-719658

PATIENT
  Age: 63 None
  Sex: Female
  Weight: 40 kg

DRUGS (22)
  1. TOCILIZUMAB [Suspect]
     Indication: RHEUMATOID ARTHRITIS
     Route: 041
     Dates: start: 20090526, end: 20090526
  2. TOCILIZUMAB [Suspect]
     Route: 041
     Dates: start: 20090623, end: 20090623
  3. TOCILIZUMAB [Suspect]
     Route: 041
     Dates: start: 20090721, end: 20090721
  4. TOCILIZUMAB [Suspect]
     Route: 041
     Dates: start: 20090818, end: 20090818
  5. TOCILIZUMAB [Suspect]
     Route: 041
     Dates: start: 20090905, end: 20090905
  6. TOCILIZUMAB [Suspect]
     Route: 041
     Dates: start: 20091013, end: 20091013
  7. TOCILIZUMAB [Suspect]
     Route: 041
     Dates: start: 20091117, end: 20091117
  8. TOCILIZUMAB [Suspect]
     Route: 041
     Dates: start: 20091222, end: 20091222
  9. TOCILIZUMAB [Suspect]
     Route: 041
     Dates: start: 20100126, end: 20100126
  10. TOCILIZUMAB [Suspect]
     Route: 041
     Dates: start: 20100302, end: 20100302
  11. TOCILIZUMAB [Suspect]
     Route: 041
     Dates: start: 20100406, end: 20100406
  12. TOCILIZUMAB [Suspect]
     Route: 041
     Dates: start: 20100511, end: 20100511
  13. TOCILIZUMAB [Suspect]
     Route: 041
     Dates: start: 20100615, end: 20110426
  14. TOCILIZUMAB [Suspect]
     Route: 041
     Dates: start: 20110531, end: 20111115
  15. METHOTREXATE [Suspect]
     Indication: RHEUMATOID ARTHRITIS
     Route: 048
     Dates: end: 20091013
  16. SELBEX [Concomitant]
     Indication: PROPHYLAXIS
     Route: 048
  17. GASTER [Concomitant]
     Indication: PROPHYLAXIS
     Route: 048
  18. CELCOX [Concomitant]
     Indication: RHEUMATOID ARTHRITIS
     Route: 048
  19. ALENDRONATE SODIUM [Concomitant]
     Indication: RHEUMATOID ARTHRITIS
     Route: 048
  20. PREDNISOLONE [Concomitant]
     Indication: RHEUMATOID ARTHRITIS
     Route: 048
     Dates: end: 20090721
  21. PREDNISOLONE [Concomitant]
     Route: 048
     Dates: start: 20090722
  22. PREDNISOLONE [Concomitant]
     Route: 048

REACTIONS (5)
  - Gingival abscess [Recovered/Resolved]
  - Cardiac failure congestive [Not Recovered/Not Resolved]
  - Stomatitis [Recovered/Resolved]
  - Hepatic congestion [Not Recovered/Not Resolved]
  - Tricuspid valve incompetence [Not Recovered/Not Resolved]
